FAERS Safety Report 4521260-2 (Version None)
Quarter: 2004Q4

REPORT INFORMATION
  Report Type: 
  Country: None (occurrence: None)
  Receive Date: 20041208
  Receipt Date: 20040830
  Transmission Date: 20050328
  Serious: Yes (Other)
  Sender: FDA-Public Use
  Company Number: US-GLAXOSMITHKLINE-A0523781A

PATIENT
  Age: 68 Year
  Sex: Female

DRUGS (4)
  1. LAMICTAL [Suspect]
     Indication: PAIN
     Dosage: 25MG PER DAY
     Route: 048
     Dates: start: 20040818
  2. AMBIEN [Concomitant]
  3. KLONOPIN [Concomitant]
  4. TOPROL-XL [Concomitant]

REACTIONS (11)
  - CHAPPED LIPS [None]
  - DIARRHOEA HAEMORRHAGIC [None]
  - FACE OEDEMA [None]
  - HEADACHE [None]
  - LIVEDO RETICULARIS [None]
  - LYMPHADENOPATHY [None]
  - PRURITUS [None]
  - RASH [None]
  - RASH SCALY [None]
  - SKIN BURNING SENSATION [None]
  - SWOLLEN TONGUE [None]
